FAERS Safety Report 8357617-1 (Version None)
Quarter: 2012Q2

REPORT INFORMATION
  Report Type: 
  Country: None (occurrence: None)
  Receive Date: 20120514
  Receipt Date: 20120508
  Transmission Date: 20120825
  Serious: No
  Sender: FDA-Public Use
  Company Number: US-PFIZER INC-2012112503

PATIENT

DRUGS (1)
  1. ZYVOX [Suspect]
     Dosage: 600 MG, Q 12 H

REACTIONS (1)
  - PLATELET COUNT DECREASED [None]
